FAERS Safety Report 9552745 (Version 1)
Quarter: 2013Q3

REPORT INFORMATION
  Report Type: Spontaneous
  Country: US (occurrence: None)
  Receive Date: 20130916
  Receipt Date: 20130916
  Transmission Date: 20140515
  Serious: Yes (Hospitalization)
  Sender: FDA-Public Use
  Company Number: 003-148

PATIENT
  Age: 37 Year
  Sex: Male

DRUGS (1)
  1. CROFAB (BTG INTERNATIONAL, INC) [Suspect]
     Indication: SNAKE BITE
     Dosage: 24 VIALS TOTAL
     Dates: start: 20130905, end: 20130907

REACTIONS (3)
  - Swelling [None]
  - Contusion [None]
  - Blood glucose increased [None]
